FAERS Safety Report 18502559 (Version 2)
Quarter: 2021Q1

REPORT INFORMATION
  Report Type: Report from Study
  Country: GB (occurrence: GB)
  Receive Date: 20201113
  Receipt Date: 20210319
  Transmission Date: 20210419
  Serious: Yes (Other)
  Sender: FDA-Public Use
  Company Number: GB-UCBSA-2020045251

PATIENT

DRUGS (1)
  1. CERTOLIZUMAB PEGOL [Suspect]
     Active Substance: CERTOLIZUMAB PEGOL
     Indication: RHEUMATOID ARTHRITIS

REACTIONS (6)
  - Pneumonia [Unknown]
  - Tooth abscess [Unknown]
  - Gastric disorder [Unknown]
  - Anaphylactic reaction [Unknown]
  - Asthma [Unknown]
  - Dyspnoea [Unknown]
